FAERS Safety Report 4545950-0 (Version None)
Quarter: 2005Q1

REPORT INFORMATION
  Report Type: 
  Country: None (occurrence: None)
  Receive Date: 20050103
  Receipt Date: 20041215
  Transmission Date: 20050727
  Serious: Yes (Other)
  Sender: FDA-Public Use
  Company Number: USA041285676

PATIENT
  Age: 62 Year
  Sex: Female
  Weight: 50 kg

DRUGS (2)
  1. FORTEO [Suspect]
     Indication: OSTEOPOROSIS
     Dosage: 20 UG/1 EVERY OTHER DAY
     Dates: start: 20041124
  2. CALTRATE + D [Concomitant]

REACTIONS (8)
  - ASTHENIA [None]
  - EATING DISORDER [None]
  - LUNG DISORDER [None]
  - NAUSEA [None]
  - OXYGEN SATURATION ABNORMAL [None]
  - PHARMACEUTICAL PRODUCT COMPLAINT [None]
  - SCAR [None]
  - VOMITING [None]
